FAERS Safety Report 7502833-1 (Version None)
Quarter: 2011Q2

REPORT INFORMATION
  Report Type: 
  Country: None (occurrence: None)
  Receive Date: 20110525
  Receipt Date: 20100811
  Transmission Date: 20111010
  Serious: No
  Sender: FDA-Public Use
  Company Number: US-NOVEN-ALL1-2010-04255

PATIENT

DRUGS (3)
  1. DAYTRANA [Suspect]
     Dosage: 10 MG, 1X/DAY:QD
     Route: 062
     Dates: start: 20100804, end: 20100804
  2. CLONIDINE [Concomitant]
     Dosage: UNK MG, ADMINSTERED 3/4 OF A 1 MG TABLET 1X/DAY:QD
     Route: 048
     Dates: start: 20080101
  3. MELATONIN [Concomitant]
     Dosage: 3 MG, 1X/DAY:QD
     Route: 048
     Dates: start: 20080101

REACTIONS (4)
  - PRODUCT QUALITY ISSUE [None]
  - TIC [None]
  - INCORRECT DRUG ADMINISTRATION DURATION [None]
  - OFF LABEL USE [None]
